FAERS Safety Report 7995818-2 (Version None)
Quarter: 2011Q4

REPORT INFORMATION
  Report Type: 
  Country: None (occurrence: None)
  Receive Date: 20111220
  Receipt Date: 20111212
  Transmission Date: 20120403
  Serious: Yes (Hospitalization, Other)
  Sender: FDA-Public Use
  Company Number: US-JNJFOC-20111205467

PATIENT
  Sex: Male

DRUGS (2)
  1. DURAGESIC-100 [Suspect]
     Indication: PAIN
     Route: 062
  2. FENTANYL [Suspect]
     Indication: PAIN
     Route: 062

REACTIONS (6)
  - VASODILATATION [None]
  - BACK PAIN [None]
  - CHEST PAIN [None]
  - OEDEMA PERIPHERAL [None]
  - BODY HEIGHT DECREASED [None]
  - PULMONARY EMBOLISM [None]
